FAERS Safety Report 20958931 (Version 2)
Quarter: 2022Q3

REPORT INFORMATION
  Report Type: Spontaneous
  Country: US (occurrence: US)
  Receive Date: 20220614
  Receipt Date: 20220718
  Transmission Date: 20221026
  Serious: Yes (Other)
  Sender: FDA-Public Use
  Company Number: US-BRISTOL-MYERS SQUIBB COMPANY-2022-056641

PATIENT
  Age: 84 Year
  Sex: Female

DRUGS (17)
  1. POMALYST [Suspect]
     Active Substance: POMALIDOMIDE
     Indication: Plasma cell myeloma
     Route: 048
     Dates: start: 202107
  2. POMALYST [Suspect]
     Active Substance: POMALIDOMIDE
     Indication: Kaposi^s sarcoma
     Route: 048
     Dates: start: 20220513
  3. POMALYST [Suspect]
     Active Substance: POMALIDOMIDE
     Route: 048
     Dates: start: 20220705
  4. DECADRON [Concomitant]
     Active Substance: DEXAMETHASONE
     Indication: Product used for unknown indication
     Dosage: TAKE THREE TABLETS BY MOUTH EVERY 7DAYS.TAKE WITH FOOD.
     Route: 048
     Dates: start: 20220609
  5. ELIQUIS [Concomitant]
     Active Substance: APIXABAN
     Indication: Product used for unknown indication
     Dosage: TAKE 1 TABLET BY MOUTH TWICE DAILY.
     Route: 048
     Dates: start: 20210816
  6. DULOXETINE [Concomitant]
     Active Substance: DULOXETINE
     Indication: Product used for unknown indication
     Route: 048
  7. NEURONTIN [Concomitant]
     Active Substance: GABAPENTIN
     Indication: Neuralgia
     Dosage: TAKE 2 CAPSULE BY MOUTH AT 8.00 AM AND AFTERNOON, AND 4 CAPSULES AT BEDTIME.
     Route: 048
     Dates: start: 20220701
  8. LEVOTHYROXINE [Concomitant]
     Active Substance: LEVOTHYROXINE
     Indication: Product used for unknown indication
     Dosage: TAKE 75 MCG BY MOUTH DAILY 30 MINUTES BEFORE BREAKFAST.
     Route: 048
  9. POMALIDOMIDE [Concomitant]
     Active Substance: POMALIDOMIDE
     Indication: Kaposi^s sarcoma
     Route: 048
     Dates: start: 20220705
  10. POTASSIUM CHLORIDE [Concomitant]
     Active Substance: POTASSIUM CHLORIDE
     Indication: Product used for unknown indication
     Dosage: WITH A MEAL AND A FULL GLASS OF WATER
     Route: 048
     Dates: start: 20220103
  11. SENNOSIDES [Concomitant]
     Active Substance: SENNOSIDES
     Indication: Product used for unknown indication
     Route: 048
  12. ZOCOR [Concomitant]
     Active Substance: SIMVASTATIN
     Indication: Product used for unknown indication
     Route: 048
  13. ZOVIRAX [ACICLOVIR SODIUM] [Concomitant]
     Indication: Product used for unknown indication
     Route: 048
     Dates: start: 20220413
  14. LIDOCAINE AND PRILOCAINE [Concomitant]
     Active Substance: LIDOCAINE\PRILOCAINE
     Indication: Product used for unknown indication
     Dosage: 2.5/2.5%?APPLY TOPICALLY TO AFFECTED AREA AS NEEDED?NOTES: USES 30 MINS TO 1 HR PRIOR TO PORTACATH N
     Route: 061
     Dates: start: 20210923
  15. COZAAR [Concomitant]
     Active Substance: LOSARTAN POTASSIUM
     Indication: Product used for unknown indication
     Route: 048
  16. REMERON [Concomitant]
     Active Substance: MIRTAZAPINE
     Indication: Product used for unknown indication
     Dosage: AT BEDTIME
     Route: 048
  17. PROTONIX [Concomitant]
     Active Substance: PANTOPRAZOLE SODIUM
     Indication: Product used for unknown indication
     Route: 048

REACTIONS (1)
  - Neutropenia [Unknown]

NARRATIVE: CASE EVENT DATE: 20220609
